FAERS Safety Report 19179920 (Version 1)
Quarter: 2021Q2

REPORT INFORMATION
  Report Type: Spontaneous
  Country: US (occurrence: US)
  Receive Date: 20210426
  Receipt Date: 20210426
  Transmission Date: 20210717
  Serious: No
  Sender: FDA-Public Use
  Company Number: None

PATIENT
  Age: 42 Year
  Sex: Female

DRUGS (10)
  1. MIDODRINE [Concomitant]
     Active Substance: MIDODRINE
  2. HYDROXYZINE [Concomitant]
     Active Substance: HYDROXYZINE HYDROCHLORIDE
  3. HYOSCIAMINE FAMOTIDINE [Concomitant]
  4. PRASOZIN [Concomitant]
     Active Substance: PRAZOSIN
  5. VITAMIN D [Concomitant]
     Active Substance: VITAMIN D NOS
  6. SCOPOLAMINE PATCH [Suspect]
     Active Substance: SCOPOLAMINE
     Indication: IMPAIRED GASTRIC EMPTYING
     Route: 062
     Dates: start: 20210318
  7. ADDERALL [Concomitant]
     Active Substance: AMPHETAMINE ASPARTATE\AMPHETAMINE SULFATE\DEXTROAMPHETAMINE SACCHARATE\DEXTROAMPHETAMINE SULFATE
  8. LITHIUM CARBONATE. [Concomitant]
     Active Substance: LITHIUM CARBONATE
  9. BACLOFEN. [Concomitant]
     Active Substance: BACLOFEN
  10. TRULANCE [Concomitant]
     Active Substance: PLECANATIDE

REACTIONS (2)
  - Vomiting [None]
  - Product adhesion issue [None]

NARRATIVE: CASE EVENT DATE: 20210318
